FAERS Safety Report 13839602 (Version 1)
Quarter: 2017Q3

REPORT INFORMATION
  Report Type: Spontaneous
  Country: US (occurrence: US)
  Receive Date: 20170805
  Receipt Date: 20170805
  Transmission Date: 20171127
  Serious: Yes (Hospitalization)
  Sender: FDA-Public Use
  Company Number: None

PATIENT
  Age: 48 Year
  Sex: Male

DRUGS (13)
  1. ASPIRIN. [Concomitant]
     Active Substance: ASPIRIN
  2. ATORVASTATIN [Concomitant]
     Active Substance: ATORVASTATIN
  3. DEXAMETHASONE. [Concomitant]
     Active Substance: DEXAMETHASONE
  4. LEVETIRACETAM. [Concomitant]
     Active Substance: LEVETIRACETAM
  5. LORAZAPAM [Concomitant]
     Active Substance: LORAZEPAM
  6. OXCARBAZINE [Concomitant]
     Active Substance: OXCARBAZEPINE
  7. INSULIN ASPART [Concomitant]
     Active Substance: INSULIN ASPART
  8. ENOXAPARIN [Suspect]
     Active Substance: ENOXAPARIN
     Indication: ANTICOAGULANT THERAPY
     Dosage: 89 MG EVERY 12 HOURS SC
     Route: 058
     Dates: start: 20170202, end: 20170207
  9. LACOSAMIDE. [Concomitant]
     Active Substance: LACOSAMIDE
  10. AMLODIPINE [Concomitant]
     Active Substance: AMLODIPINE BESYLATE
  11. LABETALOL [Concomitant]
     Active Substance: LABETALOL\LABETALOL HYDROCHLORIDE
  12. HYDRALAZINE [Concomitant]
     Active Substance: HYDRALAZINE HYDROCHLORIDE
  13. WARFARIN [Concomitant]
     Active Substance: WARFARIN

REACTIONS (4)
  - Anticoagulation drug level above therapeutic [None]
  - Subdural haematoma [None]
  - Subdural haemorrhage [None]
  - Headache [None]

NARRATIVE: CASE EVENT DATE: 20170208
